FAERS Safety Report 7239892-X (Version None)
Quarter: 2011Q1

REPORT INFORMATION
  Report Type: 
  Country: None (occurrence: None)
  Receive Date: 20110123
  Receipt Date: 20110110
  Transmission Date: 20110831
  Serious: Yes (Other)
  Sender: FDA-Public Use
  Company Number: US-BAYER-2011-003436

PATIENT
  Sex: Male
  Weight: 113 kg

DRUGS (5)
  1. ZOCOR [Concomitant]
  2. ASCORBIC ACID [Concomitant]
  3. PROZAC [Concomitant]
  4. IMDUR [Concomitant]
  5. ASPIRIN [Suspect]

REACTIONS (1)
  - RENAL DISORDER [None]
